FAERS Safety Report 11811408 (Version 1)
Quarter: 2015Q4

REPORT INFORMATION
  Report Type: Spontaneous
  Country: US (occurrence: US)
  Receive Date: 20151208
  Receipt Date: 20151208
  Transmission Date: 20160305
  Serious: No
  Sender: FDA-Public Use
  Company Number: US-PFIZER INC-2015408881

PATIENT
  Age: 57 Year
  Sex: Female

DRUGS (3)
  1. CELEBREX [Suspect]
     Active Substance: CELECOXIB
     Dosage: 400 MG, UNK
     Dates: end: 2015
  2. VITAMIN B12 [Concomitant]
     Active Substance: CYANOCOBALAMIN
     Indication: MALABSORPTION
     Dosage: 1MG INJECTION INTRAMUSCULAR HIP OR THIGH ONCE A MONTH
     Route: 030
     Dates: start: 2001
  3. CELEBREX [Suspect]
     Active Substance: CELECOXIB
     Dosage: 200 MG, UNK
     Dates: end: 2015

REACTIONS (3)
  - Intentional product use issue [Unknown]
  - Gastrooesophageal reflux disease [Recovered/Resolved]
  - Drug effect incomplete [Unknown]
